FAERS Safety Report 17896974 (Version 1)
Quarter: 2020Q2

REPORT INFORMATION
  Report Type: Report from Study
  Country: GB (occurrence: GB)
  Receive Date: 20200615
  Receipt Date: 20200615
  Transmission Date: 20200714
  Serious: Yes (Hospitalization)
  Sender: FDA-Public Use
  Company Number: NVSC2020GB166049

PATIENT
  Age: 83 Year
  Sex: Male

DRUGS (1)
  1. SANDOSTATIN LAR DEPOT [Suspect]
     Active Substance: OCTREOTIDE ACETATE
     Indication: NEUROENDOCRINE TUMOUR
     Dosage: 30 MG (EVERY 42 DAYS)
     Route: 065
     Dates: start: 20180301

REACTIONS (2)
  - Fall [Recovering/Resolving]
  - Asthenia [Recovering/Resolving]
